FAERS Safety Report 5893145-0 (Version None)
Quarter: 2008Q3

REPORT INFORMATION
  Report Type: 
  Country: None (occurrence: None)
  Receive Date: 20080923
  Receipt Date: 20070824
  Transmission Date: 20090109
  Serious: No
  Sender: FDA-Public Use
  Company Number: US-ASTRAZENECA-2007UW20331

PATIENT
  Age: 27 Year
  Sex: Female
  Weight: 52.6 kg

DRUGS (1)
  1. SEROQUEL [Suspect]
     Indication: AFFECTIVE DISORDER
     Route: 048
     Dates: start: 20070823

REACTIONS (2)
  - DIZZINESS [None]
  - FATIGUE [None]
